FAERS Safety Report 5174420-4 (Version None)
Quarter: 2006Q4

REPORT INFORMATION
  Report Type: 
  Country: None (occurrence: None)
  Receive Date: 20061214
  Receipt Date: 20061204
  Transmission Date: 20070319
  Serious: Yes (Life-Threatening)
  Sender: FDA-Public Use
  Company Number: FR-SANOFI-SYNTHELABO-A02200603102

PATIENT
  Age: 55 Year
  Sex: Female
  Weight: 90 kg

DRUGS (2)
  1. DURAGESIC-100 [Suspect]
     Indication: CANCER PAIN
     Dosage: UNK
     Route: 062
     Dates: start: 20060601, end: 20060917
  2. ZOLPIDEM TARTRATE [Suspect]
     Indication: INSOMNIA
     Route: 048
     Dates: start: 20050101, end: 20060919

REACTIONS (4)
  - DIABETIC COMPLICATION [None]
  - HEPATIC ENCEPHALOPATHY [None]
  - ORAL INTAKE REDUCED [None]
  - PULMONARY OEDEMA [None]
